FAERS Safety Report 7130163-9 (Version None)
Quarter: 2010Q4

REPORT INFORMATION
  Report Type: 
  Country: None (occurrence: None)
  Receive Date: 20101112
  Receipt Date: 20101027
  Transmission Date: 20110411
  Serious: Yes (Other)
  Sender: FDA-Public Use
  Company Number: 2010-01052

PATIENT
  Sex: Male

DRUGS (4)
  1. SIMVASTATIN [Suspect]
     Indication: PRODUCT USED FOR UNKNOWN INDICATION
  2. FLECAINIDE [Suspect]
     Indication: PRODUCT USED FOR UNKNOWN INDICATION
     Dosage: 110 MG (1 IN 1 D)
  3. BISOPROLOL [Suspect]
     Indication: PRODUCT USED FOR UNKNOWN INDICATION
     Dosage: 10 MG (1 IN 1 D)
  4. RAMIPRIL [Suspect]
     Indication: HYPERTENSION
     Dosage: 5 MG (1 IN 1 D), ORAL
     Route: 048
     Dates: start: 20100501

REACTIONS (3)
  - ATRIAL FIBRILLATION [None]
  - DRUG INTERACTION [None]
  - PALPITATIONS [None]
